FAERS Safety Report 5246780-7 (Version None)
Quarter: 2007Q1

REPORT INFORMATION
  Report Type: 
  Country: None (occurrence: None)
  Receive Date: 20070223
  Receipt Date: 20070223
  Transmission Date: 20070707
  Serious: No
  Sender: FDA-Public Use
  Company Number: None

PATIENT
  Age: 54 Year
  Sex: Female

DRUGS (2)
  1. LYRICA [Suspect]
     Indication: DIABETIC NEUROPATHY
     Dosage: 75 MG PO BID
     Route: 048
  2. LYRICA [Suspect]
     Indication: PAIN
     Dosage: 75 MG PO BID
     Route: 048

REACTIONS (1)
  - INTRAOCULAR PRESSURE INCREASED [None]
